FAERS Safety Report 9237366 (Version 1)
Quarter: 2013Q2

REPORT INFORMATION
  Report Type: Report from Study
  Country: ES (occurrence: ES)
  Receive Date: 20130417
  Receipt Date: 20130417
  Transmission Date: 20140414
  Serious: Yes (Hospitalization)
  Sender: FDA-Public Use
  Company Number: ES-AMGEN-ESPNI2013025925

PATIENT
  Age: 55 Year
  Sex: Male

DRUGS (4)
  1. PANITUMUMAB [Suspect]
     Indication: COLORECTAL CANCER METASTATIC
     Dosage: 420 MG, Q2WK
     Route: 042
     Dates: start: 20110125
  2. FOLINIC ACID [Concomitant]
     Indication: COLORECTAL CANCER METASTATIC
     Dosage: 362 MG, Q2WK
     Dates: start: 20121002
  3. 5 FU [Concomitant]
     Indication: COLORECTAL CANCER METASTATIC
     Dosage: 724 MG, Q2WK
     Route: 042
     Dates: start: 20120305
  4. OXALIPLATIN [Concomitant]
     Indication: COLORECTAL CANCER METASTATIC
     Dosage: UNK UNK, Q2WK
     Route: 042
     Dates: start: 20120305, end: 20121016

REACTIONS (2)
  - Pancytopenia [Recovered/Resolved]
  - Diarrhoea [Recovered/Resolved]
